FAERS Safety Report 8326440-6 (Version None)
Quarter: 2012Q2

REPORT INFORMATION
  Report Type: 
  Country: None (occurrence: None)
  Receive Date: 20120501
  Receipt Date: 20120425
  Transmission Date: 20120825
  Serious: Yes (Hospitalization)
  Sender: FDA-Public Use
  Company Number: US-B.I. PHARMACEUTICALS,INC./RIDGEFIELD-2012-BP-09476BP

PATIENT
  Sex: Female

DRUGS (22)
  1. VICODIN [Concomitant]
     Indication: PAIN
     Dates: start: 19970101
  2. ALBUTEROL [Concomitant]
     Indication: CHRONIC OBSTRUCTIVE PULMONARY DISEASE
     Route: 055
  3. ALBUTEROL [Concomitant]
     Indication: FIBROSIS
  4. AZMACORT [Concomitant]
     Indication: CHRONIC OBSTRUCTIVE PULMONARY DISEASE
  5. AZMACORT [Concomitant]
     Indication: FIBROSIS
  6. OXYGEN [Concomitant]
     Indication: CHRONIC OBSTRUCTIVE PULMONARY DISEASE
     Route: 055
     Dates: start: 20110101
  7. OXYGEN [Concomitant]
     Indication: INTERSTITIAL LUNG DISEASE
  8. ALBUTEROL [Concomitant]
     Indication: INTERSTITIAL LUNG DISEASE
  9. AZMACORT [Concomitant]
     Indication: INTERSTITIAL LUNG DISEASE
  10. SPIRIVA [Suspect]
     Indication: FIBROSIS
  11. FLEXERIL [Concomitant]
     Indication: PAIN
     Route: 048
  12. SYMBICORT [Concomitant]
     Indication: FIBROSIS
  13. ZOFRAN [Concomitant]
     Indication: NAUSEA
     Route: 048
  14. SPIRIVA [Suspect]
     Indication: CHRONIC OBSTRUCTIVE PULMONARY DISEASE
     Dosage: 18 MCG
     Route: 055
     Dates: start: 20110101
  15. SPIRIVA [Suspect]
     Indication: INTERSTITIAL LUNG DISEASE
  16. LAMICTAL [Concomitant]
     Indication: CONVULSION
     Route: 048
     Dates: start: 19970101
  17. SYMBICORT [Concomitant]
     Indication: INTERSTITIAL LUNG DISEASE
  18. GABAPENTIN [Concomitant]
     Indication: CONVULSION
     Route: 048
  19. SYMBICORT [Concomitant]
     Indication: CHRONIC OBSTRUCTIVE PULMONARY DISEASE
     Route: 055
  20. CLONAZEPAM [Concomitant]
     Indication: ANXIETY
     Route: 048
  21. OXYGEN [Concomitant]
     Indication: FIBROSIS
  22. XANAX [Concomitant]
     Indication: ANXIETY
     Route: 048

REACTIONS (2)
  - RESPIRATORY FAILURE [None]
  - LUNG INFECTION [None]
